FAERS Safety Report 9262605 (Version 1)
Quarter: 2013Q2

REPORT INFORMATION
  Report Type: Spontaneous
  Country: BR (occurrence: BR)
  Receive Date: 20130430
  Receipt Date: 20130430
  Transmission Date: 20140414
  Serious: Yes (Hospitalization)
  Sender: FDA-Public Use
  Company Number: BR-ELI_LILLY_AND_COMPANY-BR201304006658

PATIENT
  Age: 31 Year
  Sex: Female
  Weight: 81 kg

DRUGS (5)
  1. CYMBALTA [Suspect]
     Indication: DEPRESSION
     Dosage: 60 MG, EACH MORNING
     Route: 048
     Dates: start: 20130315, end: 20130319
  2. DIPIRONA [Concomitant]
     Indication: PAIN
     Dosage: 500 MG, EVERY 6 HRS
     Route: 065
     Dates: start: 201302
  3. PARACETAMOL [Concomitant]
     Indication: PAIN
     Dosage: 750 MG, EVERY 6 HRS
     Route: 065
     Dates: start: 201302
  4. VENLAFAXINA [Concomitant]
     Dosage: 75 MG, UNKNOWN
     Route: 065
  5. DIAZEPAM [Concomitant]
     Dosage: UNK, UNKNOWN
     Route: 065

REACTIONS (4)
  - Intervertebral disc protrusion [Unknown]
  - Nausea [Recovered/Resolved]
  - Malaise [Recovered/Resolved]
  - Dizziness [Recovered/Resolved]
